FAERS Safety Report 23719383 (Version 4)
Quarter: 2024Q4

REPORT INFORMATION
  Report Type: Spontaneous
  Country: AR (occurrence: AR)
  Receive Date: 20240408
  Receipt Date: 20241118
  Transmission Date: 20250114
  Serious: Yes (Other)
  Sender: MYLAN
  Company Number: AR-MYLANLABS-2024M1025301

PATIENT
  Age: 36 Year
  Sex: Male

DRUGS (9)
  1. CLOZAPINE [Suspect]
     Active Substance: CLOZAPINE
     Indication: Schizophrenia
     Dosage: UNK
     Route: 065
     Dates: start: 20040426
  2. CLOZAPINE [Suspect]
     Active Substance: CLOZAPINE
     Dosage: 450 MILLIGRAM
     Route: 065
     Dates: start: 20210928
  3. LITHIUM [Concomitant]
     Active Substance: LITHIUM
     Dosage: 900 MILLIGRAM, QD (900 MG/DAY)
     Route: 065
  4. BIPERIDEN [Concomitant]
     Active Substance: BIPERIDEN
     Dosage: 4.5 MILLIGRAM, QD (4.5 MG/D)
     Route: 065
  5. VALPROATE SODIUM [Concomitant]
     Active Substance: VALPROATE SODIUM
     Dosage: 1500 MILLIGRAM, QD (1500 MG/D)
     Route: 065
  6. MEMANTINE [Concomitant]
     Active Substance: MEMANTINE
     Dosage: 10 MILLIGRAM, QD (10 MG/D)
     Route: 065
  7. OLANZAPINE [Concomitant]
     Active Substance: OLANZAPINE
     Dosage: 20 MILLIGRAM, QD (20 MG/D)
     Route: 065
  8. LEVOMEPROMAZINE [Concomitant]
     Active Substance: LEVOMEPROMAZINE
     Dosage: 30 MILLIGRAM, QD (30 MG/D)
     Route: 065
  9. CLONAZEPAM [Concomitant]
     Active Substance: CLONAZEPAM
     Dosage: 4 MILLIGRAM, QD (4 MG/D)
     Route: 065

REACTIONS (9)
  - Leukopenia [Recovered/Resolved]
  - Neutropenia [Recovered/Resolved]
  - Red blood cell count decreased [Unknown]
  - Monocyte count increased [Unknown]
  - Leukocytosis [Recovered/Resolved]
  - Neutrophil count increased [Recovered/Resolved]
  - Lymphocyte count decreased [Unknown]
  - Platelet count decreased [Not Recovered/Not Resolved]
  - Dengue fever [Recovering/Resolving]

NARRATIVE: CASE EVENT DATE: 20240306
